FAERS Safety Report 7608468-4 (Version None)
Quarter: 2011Q3

REPORT INFORMATION
  Report Type: 
  Country: None (occurrence: None)
  Receive Date: 20110714
  Receipt Date: 20110627
  Transmission Date: 20111222
  Serious: Yes (Hospitalization)
  Sender: FDA-Public Use
  Company Number: DE-BAYER-2011-045772

PATIENT
  Sex: Female
  Weight: 62.132 kg

DRUGS (1)
  1. MIRENA [Suspect]

REACTIONS (1)
  - BREAST CANCER [None]
